FAERS Safety Report 12836745 (Version 3)
Quarter: 2016Q4

REPORT INFORMATION
  Report Type: Spontaneous
  Country: US (occurrence: US)
  Receive Date: 20161011
  Receipt Date: 20161103
  Transmission Date: 20170207
  Serious: No
  Sender: FDA-Public Use
  Company Number: US-009507513-1609USA014815

PATIENT
  Age: 25 Year
  Sex: Female
  Weight: 149.66 kg

DRUGS (1)
  1. NEXPLANON [Suspect]
     Active Substance: ETONOGESTREL
     Dosage: 1 DF, UNK
     Route: 059
     Dates: start: 201503

REACTIONS (2)
  - Complication associated with device [Recovered/Resolved]
  - Implant site pain [Unknown]
